FAERS Safety Report 8272939-0 (Version None)
Quarter: 2012Q2

REPORT INFORMATION
  Report Type: 
  Country: None (occurrence: None)
  Receive Date: 20120411
  Receipt Date: 20120329
  Transmission Date: 20120825
  Serious: Yes (Hospitalization, Other)
  Sender: FDA-Public Use
  Company Number: GB-ELI_LILLY_AND_COMPANY-GB201203008927

PATIENT
  Weight: 3.3 kg

DRUGS (2)
  1. OLANZAPINE [Suspect]
     Route: 064
  2. OLANZAPINE [Suspect]
     Indication: BIPOLAR DISORDER
     Route: 064

REACTIONS (3)
  - HYPOTONIA NEONATAL [None]
  - FEEDING DISORDER NEONATAL [None]
  - FOETAL EXPOSURE DURING PREGNANCY [None]
